FAERS Safety Report 8819796 (Version 2)
Quarter: 2012Q4

REPORT INFORMATION
  Report Type: 
  Country: US (occurrence: US)
  Receive Date: 20121001
  Receipt Date: 20121012
  Transmission Date: 20130627
  Serious: Yes (Hospitalization, Other)
  Sender: FDA-Public Use
  Company Number: US-ROCHE-1125806

PATIENT
  Age: 49 Year
  Sex: Female

DRUGS (8)
  1. HERCEPTIN [Suspect]
     Indication: PRODUCT USED FOR UNKNOWN INDICATION
  2. AVASTIN [Suspect]
     Indication: BREAST CANCER FEMALE
     Route: 065
  3. AVASTIN [Suspect]
     Indication: BRAIN NEOPLASM MALIGNANT
  4. 5-FLUOROURACIL [Concomitant]
  5. EPIRUBICIN [Concomitant]
  6. CYTOXAN [Concomitant]
  7. TAXOL [Concomitant]
  8. ARIMIDEX [Concomitant]

REACTIONS (6)
  - Malaise [Unknown]
  - Headache [Unknown]
  - Vision blurred [Unknown]
  - Central nervous system lesion [Unknown]
  - Chest pain [Unknown]
  - Back pain [Unknown]
